FAERS Safety Report 8353431-1 (Version None)
Quarter: 2012Q2

REPORT INFORMATION
  Report Type: 
  Country: None (occurrence: None)
  Receive Date: 20120511
  Receipt Date: 20110705
  Transmission Date: 20120825
  Serious: No
  Sender: FDA-Public Use
  Company Number: US-GLAXOSMITHKLINE-A0902506A

PATIENT
  Age: 64 Year
  Sex: Female

DRUGS (2)
  1. TYKERB [Suspect]
     Indication: BREAST CANCER
     Dosage: 1250MG PER DAY
     Route: 048
     Dates: start: 20101028
  2. XELODA [Suspect]
     Route: 065
     Dates: end: 20101227

REACTIONS (3)
  - LACERATION [None]
  - IMPAIRED HEALING [None]
  - DISEASE PROGRESSION [None]
